FAERS Safety Report 7512525-0 (Version None)
Quarter: 2011Q2

REPORT INFORMATION
  Report Type: 
  Country: None (occurrence: None)
  Receive Date: 20110531
  Receipt Date: 20110523
  Transmission Date: 20111010
  Serious: Yes (Other)
  Sender: FDA-Public Use
  Company Number: US-ROCHE-778900

PATIENT
  Sex: Male

DRUGS (3)
  1. RIBAVIRIN [Suspect]
     Indication: HEPATITIS C
     Route: 065
     Dates: start: 20101231
  2. PEGINTERFERON ALFA-2A [Suspect]
     Route: 065
     Dates: start: 20110401
  3. PEGINTERFERON ALFA-2A [Suspect]
     Indication: HEPATITIS C
     Route: 065
     Dates: start: 20101231, end: 20110401

REACTIONS (2)
  - OESOPHAGEAL PERFORATION [None]
  - NAUSEA [None]
